FAERS Safety Report 22214925 (Version 2)
Quarter: 2023Q2

REPORT INFORMATION
  Report Type: Spontaneous
  Country: IT (occurrence: IT)
  Receive Date: 20230415
  Receipt Date: 20230419
  Transmission Date: 20230722
  Serious: Yes (Life-Threatening, Hospitalization, Other)
  Sender: FDA-Public Use
  Company Number: IT-MINISAL02-916531

PATIENT
  Age: 53 Year
  Sex: Male
  Weight: 64 kg

DRUGS (3)
  1. LENALIDOMIDE [Suspect]
     Active Substance: LENALIDOMIDE
     Indication: Product used for unknown indication
     Dosage: 5 MILLIGRAM, ONCE A DAY (ONE 5 MG TABLET PER DAY)
     Route: 048
     Dates: start: 20230214, end: 20230215
  2. DARZALEX [Suspect]
     Active Substance: DARATUMUMAB
     Indication: Primary amyloidosis
     Dosage: 1800 MILLIGRAM
     Route: 058
     Dates: start: 20230214, end: 20230214
  3. DEXAMETHASONE [Suspect]
     Active Substance: DEXAMETHASONE
     Indication: Product used for unknown indication
     Dosage: 20 MILLIGRAM, ONCE A DAY (20 MG 1 C)
     Route: 048
     Dates: start: 20230214, end: 20230214

REACTIONS (4)
  - Angina pectoris [Recovered/Resolved]
  - Left ventricular failure [Recovered/Resolved]
  - Electrocardiogram ST segment depression [Recovered/Resolved]
  - Troponin increased [Recovered/Resolved]

NARRATIVE: CASE EVENT DATE: 20230215
